FAERS Safety Report 20974198 (Version 1)
Quarter: 2022Q2

REPORT INFORMATION
  Report Type: Spontaneous
  Country: US (occurrence: US)
  Receive Date: 20220617
  Receipt Date: 20220617
  Transmission Date: 20220721
  Serious: No
  Sender: FDA-Public Use
  Company Number: US-BAUSCH-BL-2022-014566

PATIENT
  Sex: Female

DRUGS (1)
  1. BENOXINATE HYDROCHLORIDE\FLUORESCEIN SODIUM [Suspect]
     Active Substance: BENOXINATE HYDROCHLORIDE\FLUORESCEIN SODIUM
     Indication: Product used for unknown indication
     Route: 047

REACTIONS (1)
  - Instillation site pain [Not Recovered/Not Resolved]
